FAERS Safety Report 8171700-5 (Version None)
Quarter: 2012Q1

REPORT INFORMATION
  Report Type: 
  Country: None (occurrence: None)
  Receive Date: 20120228
  Receipt Date: 20120213
  Transmission Date: 20120608
  Serious: Yes (Other)
  Sender: FDA-Public Use
  Company Number: FR-ARROW GEN-2012-03126

PATIENT
  Age: 12 Year

DRUGS (2)
  1. LAMOTRIGINE [Suspect]
     Indication: PETIT MAL EPILEPSY
     Dosage: UNK
  2. LEVETIRACETAM [Suspect]
     Indication: PETIT MAL EPILEPSY
     Dosage: 2000 MG (50 MG/KG/J [SIC])

REACTIONS (2)
  - CONVULSION [None]
  - RASH [None]
